FAERS Safety Report 13525268 (Version 1)
Quarter: 2017Q2

REPORT INFORMATION
  Report Type: Spontaneous
  Country: US (occurrence: US)
  Receive Date: 20170508
  Receipt Date: 20170508
  Transmission Date: 20170830
  Serious: Yes (Hospitalization)
  Sender: FDA-Public Use
  Company Number: US-ROCHE-1140848

PATIENT
  Age: 71 Year
  Sex: Female
  Weight: 76 kg

DRUGS (15)
  1. RESTASIS [Concomitant]
     Active Substance: CYCLOSPORINE
  2. IRINOTECAN [Suspect]
     Active Substance: IRINOTECAN
     Indication: OVARIAN CANCER
     Route: 042
     Dates: start: 20120917
  3. NORVASC [Concomitant]
     Active Substance: AMLODIPINE BESYLATE
  4. BEVACIZUMAB [Suspect]
     Active Substance: BEVACIZUMAB
     Indication: OVARIAN CANCER
     Route: 042
     Dates: start: 20120917
  5. HYDROCHLOROTHIAZIDE. [Concomitant]
     Active Substance: HYDROCHLOROTHIAZIDE
  6. ATIVAN [Concomitant]
     Active Substance: LORAZEPAM
  7. DIOVAN [Concomitant]
     Active Substance: VALSARTAN
  8. VITAMIN D [Concomitant]
     Active Substance: CHOLECALCIFEROL
  9. ATENOLOL. [Concomitant]
     Active Substance: ATENOLOL
  10. SYNTHROID [Concomitant]
     Active Substance: LEVOTHYROXINE SODIUM
  11. CHONDROITIN SULFATE [Concomitant]
     Active Substance: SODIUM CHONDROITIN SULFATE
  12. CALCIUM [Concomitant]
     Active Substance: CALCIUM
  13. COSAMIN DS [Concomitant]
  14. LIPITOR [Concomitant]
     Active Substance: ATORVASTATIN CALCIUM
  15. ALLEGRA [Concomitant]
     Active Substance: FEXOFENADINE HYDROCHLORIDE

REACTIONS (1)
  - Dehydration [Unknown]

NARRATIVE: CASE EVENT DATE: 20120925
